FAERS Safety Report 17053892 (Version 10)
Quarter: 2020Q4

REPORT INFORMATION
  Report Type: Report from Study
  Country: JP (occurrence: JP)
  Receive Date: 20191120
  Receipt Date: 20201019
  Transmission Date: 20210113
  Serious: Yes (Hospitalization, Other)
  Sender: FDA-Public Use
  Company Number: NVSJ2019JP000481

PATIENT
  Age: 18 Year
  Sex: Male

DRUGS (33)
  1. ILARIS [Suspect]
     Active Substance: CANAKINUMAB
     Dosage: 255 MG
     Route: 058
     Dates: start: 20190226
  2. ILARIS [Suspect]
     Active Substance: CANAKINUMAB
     Dosage: 270 MG
     Route: 058
     Dates: start: 20190104
  3. ILARIS [Suspect]
     Active Substance: CANAKINUMAB
     Dosage: 255 MG
     Route: 058
     Dates: start: 20190423
  4. ILARIS [Suspect]
     Active Substance: CANAKINUMAB
     Dosage: 300 MG
     Route: 058
     Dates: start: 20191205
  5. PREDNISOLONE. [Concomitant]
     Active Substance: PREDNISOLONE
     Dosage: 14 MG
     Route: 048
     Dates: start: 20181109, end: 20181206
  6. PREDNISOLONE. [Concomitant]
     Active Substance: PREDNISOLONE
     Dosage: 12 MG
     Route: 048
     Dates: start: 20190226, end: 20190325
  7. ILARIS [Suspect]
     Active Substance: CANAKINUMAB
     Dosage: 300 MG
     Route: 058
     Dates: start: 20190912
  8. ILARIS [Suspect]
     Active Substance: CANAKINUMAB
     Dosage: 300 MG
     Route: 058
     Dates: start: 20191010
  9. ILARIS [Suspect]
     Active Substance: CANAKINUMAB
     Dosage: 276 MG
     Route: 058
     Dates: start: 20180914
  10. ILARIS [Suspect]
     Active Substance: CANAKINUMAB
     Dosage: 300 MG
     Route: 058
     Dates: start: 20200123
  11. PREDNISOLONE. [Concomitant]
     Active Substance: PREDNISOLONE
     Indication: STILL^S DISEASE
     Dosage: 16 MG
     Route: 048
     Dates: start: 20180607, end: 20180815
  12. IGURATIMOD [Concomitant]
     Active Substance: IGURATIMOD
     Indication: STILL^S DISEASE
     Dosage: 25 MG
     Route: 048
     Dates: start: 20190611, end: 20190715
  13. ILARIS [Suspect]
     Active Substance: CANAKINUMAB
     Dosage: 276 MG
     Route: 058
     Dates: start: 20181012
  14. ILARIS [Suspect]
     Active Substance: CANAKINUMAB
     Dosage: 276 MG
     Route: 058
     Dates: start: 20181109
  15. ILARIS [Suspect]
     Active Substance: CANAKINUMAB
     Dosage: 255 MG
     Route: 058
     Dates: start: 20190131
  16. ILARIS [Suspect]
     Active Substance: CANAKINUMAB
     Dosage: 300 MG
     Route: 058
     Dates: start: 20190618
  17. ILARIS [Suspect]
     Active Substance: CANAKINUMAB
     Dosage: 300 MG
     Route: 058
     Dates: start: 20190716
  18. PREDNISOLONE. [Concomitant]
     Active Substance: PREDNISOLONE
     Dosage: 15 MG
     Route: 048
     Dates: start: 20180816, end: 20181108
  19. PREDNISOLONE. [Concomitant]
     Active Substance: PREDNISOLONE
     Dosage: 10 MG
     Route: 048
     Dates: start: 20190423
  20. ILARIS [Suspect]
     Active Substance: CANAKINUMAB
     Dosage: 276 MG
     Route: 058
     Dates: start: 20180816
  21. ILARIS [Suspect]
     Active Substance: CANAKINUMAB
     Dosage: 255 MG
     Route: 058
     Dates: start: 20190326
  22. ILARIS [Suspect]
     Active Substance: CANAKINUMAB
     Dosage: 255 MG
     Route: 058
     Dates: start: 20190521
  23. ILARIS [Suspect]
     Active Substance: CANAKINUMAB
     Dosage: 300 MG
     Route: 058
     Dates: start: 20191107
  24. METHOTREXATE. [Concomitant]
     Active Substance: METHOTREXATE
     Indication: STILL^S DISEASE
     Dosage: 14 MG, QW
     Route: 048
     Dates: start: 20171031
  25. TACROLIMUS. [Concomitant]
     Active Substance: TACROLIMUS
     Indication: STILL^S DISEASE
     Dosage: 4.5 MG
     Route: 048
     Dates: start: 20140514, end: 20190610
  26. ILARIS [Suspect]
     Active Substance: CANAKINUMAB
     Dosage: 270 MG
     Route: 058
     Dates: start: 20181207
  27. ILARIS [Suspect]
     Active Substance: CANAKINUMAB
     Dosage: 300 MG
     Route: 058
     Dates: start: 20191225
  28. ILARIS [Suspect]
     Active Substance: CANAKINUMAB
     Dosage: 300 MG
     Route: 058
     Dates: start: 20200220, end: 20200220
  29. PREDNISOLONE. [Concomitant]
     Active Substance: PREDNISOLONE
     Dosage: 13 MG
     Route: 048
     Dates: start: 20181207, end: 20190225
  30. ILARIS [Suspect]
     Active Substance: CANAKINUMAB
     Indication: STILL^S DISEASE
     Dosage: 276 MG
     Route: 058
     Dates: start: 20180719
  31. ILARIS [Suspect]
     Active Substance: CANAKINUMAB
     Dosage: 300 MG
     Route: 058
     Dates: start: 20190813
  32. PREDNISOLONE. [Concomitant]
     Active Substance: PREDNISOLONE
     Dosage: 11 MG
     Route: 048
     Dates: start: 20190326, end: 20190422
  33. IGURATIMOD [Concomitant]
     Active Substance: IGURATIMOD
     Dosage: 50 MG
     Route: 048
     Dates: start: 20190716

REACTIONS (17)
  - Erythema [Recovered/Resolved]
  - Rash [Recovered/Resolved]
  - Pain [Recovered/Resolved]
  - Vertigo positional [Recovered/Resolved]
  - Arthralgia [Recovered/Resolved]
  - Arthralgia [Recovered/Resolved]
  - Cellulitis [Recovered/Resolved]
  - Alanine aminotransferase increased [Unknown]
  - Malaise [Recovered/Resolved]
  - Arthritis [Recovering/Resolving]
  - Haematuria [Recovered/Resolved]
  - Peripheral swelling [Recovered/Resolved]
  - Calculus urinary [Recovered/Resolved]
  - Polyarthritis [Recovering/Resolving]
  - Gastroenteritis viral [Recovered/Resolved]
  - Haematuria [Recovered/Resolved]
  - Arthralgia [Recovered/Resolved]

NARRATIVE: CASE EVENT DATE: 20180812
